FAERS Safety Report 15449746 (Version 2)
Quarter: 2019Q1

REPORT INFORMATION
  Report Type: Report from Study
  Country: US (occurrence: US)
  Receive Date: 20181001
  Receipt Date: 20190116
  Transmission Date: 20190417
  Serious: Yes (Hospitalization)
  Sender: FDA-Public Use
  Company Number: US-ROCHE-2161759

PATIENT
  Age: 65 Year
  Sex: Female
  Weight: 76.6 kg

DRUGS (3)
  1. ATEZOLIZUMAB. [Suspect]
     Active Substance: ATEZOLIZUMAB
     Indication: MALIGNANT PERITONEAL NEOPLASM
     Dosage: DATE OF MOST RECENT DOSE PRIOR TO FIRST EPISODE ABDOMINAL PAIN AND VOMITING: 15/MAR/2018 (800 MG)?DA
     Route: 042
     Dates: start: 20180111, end: 20181213
  2. BEVACIZUMAB. [Suspect]
     Active Substance: BEVACIZUMAB
     Indication: MALIGNANT PERITONEAL NEOPLASM
     Dosage: DATE OF MOST RECENT DOSE PRIOR TO FIRST EPISODE ABDOMINAL PAIN AND VOMITING:15/MAR/2018 (800 MG)?DAT
     Route: 042
     Dates: start: 20180111, end: 20181024
  3. PEGYLATED LIPOSOMAL DOXORUBICIN HYDROCHLORIDE [Suspect]
     Active Substance: DOXORUBICIN HYDROCHLORIDE
     Indication: MALIGNANT PERITONEAL NEOPLASM
     Dosage: DATE OF MOST RECENT DOSE PRIOR TO FIRST EPISODE ABDOMINAL PAIN AND VOMITING: 15/MAR/2018 (73 MG)?DAT
     Route: 042
     Dates: start: 20180111, end: 20181213

REACTIONS (4)
  - Vomiting [Recovered/Resolved]
  - Small intestinal obstruction [Unknown]
  - Abdominal pain [Recovered/Resolved with Sequelae]
  - Abdominal pain [Recovered/Resolved]

NARRATIVE: CASE EVENT DATE: 20180323
